FAERS Safety Report 4287315-5 (Version None)
Quarter: 2004Q1

REPORT INFORMATION
  Report Type: 
  Country: None (occurrence: None)
  Receive Date: 20040205
  Receipt Date: 20040121
  Transmission Date: 20041129
  Serious: Yes (Hospitalization)
  Sender: FDA-Public Use
  Company Number: US_0401100111

PATIENT
  Age: 79 Year
  Sex: Male

DRUGS (3)
  1. NIZATIDINE [Suspect]
     Dosage: 300 MG
     Dates: start: 20031114, end: 20031215
  2. DIMEMORFAN PHOSPHATE [Concomitant]
  3. PREDNISOLONE [Concomitant]

REACTIONS (1)
  - RASH GENERALISED [None]
